FAERS Safety Report 10050311 (Version 1)
Quarter: 2014Q2

REPORT INFORMATION
  Report Type: Spontaneous
  Country: JP (occurrence: JP)
  Receive Date: 20140401
  Receipt Date: 20140401
  Transmission Date: 20141212
  Serious: Yes (Other)
  Sender: FDA-Public Use
  Company Number: JP-AMGEN-JPNCT2014022515

PATIENT
  Age: 62 Year
  Sex: Female

DRUGS (12)
  1. RANMARK [Suspect]
     Indication: PRODUCT USED FOR UNKNOWN INDICATION
     Dosage: 120 MG, UNK
     Route: 058
  2. TRASTUZUMAB [Suspect]
     Indication: BREAST CANCER METASTATIC
     Dosage: 8 MG/KG, Q3WK
     Route: 041
  3. PACLITAXEL [Suspect]
     Indication: BREAST CANCER METASTATIC
     Dosage: 175 MG/M2, QD
     Route: 041
  4. MAGLAX [Concomitant]
     Dosage: UNK
     Route: 065
  5. LAC B [Concomitant]
     Indication: CONSTIPATION
     Dosage: UNK
     Route: 065
  6. CALONAL [Concomitant]
     Indication: CANCER PAIN
     Dosage: UNK
     Route: 065
  7. KERATINAMIN [Concomitant]
     Dosage: UNK
     Route: 065
  8. MYSER                              /00115501/ [Concomitant]
     Indication: RASH MACULO-PAPULAR
     Dosage: UNK
     Route: 065
  9. CALCIUM LACTATE [Concomitant]
     Indication: PROPHYLAXIS
     Dosage: UNK
     Route: 065
  10. LOXOPROFEN SODIUM [Concomitant]
     Indication: OSTEONECROSIS OF JAW
     Dosage: UNK
     Route: 065
  11. DALACIN                            /00166002/ [Concomitant]
     Indication: OSTEONECROSIS OF JAW
     Dosage: UNK
     Route: 065
  12. DENOTAS [Concomitant]
     Indication: PROPHYLAXIS
     Dosage: UNK
     Route: 065

REACTIONS (3)
  - Osteonecrosis of jaw [Not Recovered/Not Resolved]
  - Influenza like illness [Recovered/Resolved]
  - Alopecia [Unknown]
